FAERS Safety Report 7400408-6 (Version None)
Quarter: 2011Q1

REPORT INFORMATION
  Report Type: 
  Country: None (occurrence: None)
  Receive Date: 20110329
  Receipt Date: 20110315
  Transmission Date: 20110831
  Serious: Yes (Other)
  Sender: FDA-Public Use
  Company Number: MC201100108

PATIENT
  Age: 47 Year
  Sex: Male

DRUGS (2)
  1. CLEVIPREX [Suspect]
     Dosage: 2-14 ML/HR WEANED IV DRIP, INTRAVENOUS
     Route: 041
  2. PROPOFOL [Suspect]
     Dosage: 15-20ML/HR WEANED IV DRIP, INTRAVENOUS
     Route: 041

REACTIONS (3)
  - INAPPROPRIATE SCHEDULE OF DRUG ADMINISTRATION [None]
  - LIPASE INCREASED [None]
  - BLOOD AMYLASE INCREASED [None]
